FAERS Safety Report 17373595 (Version 1)
Quarter: 2020Q1

REPORT INFORMATION
  Report Type: Spontaneous
  Country: FR (occurrence: FR)
  Receive Date: 20200205
  Receipt Date: 20200205
  Transmission Date: 20200409
  Serious: Yes (Hospitalization)
  Sender: FDA-Public Use
  Company Number: NVSC2020FR025943

PATIENT
  Age: 16 Year
  Sex: Female

DRUGS (2)
  1. CLONAZEPAM. [Suspect]
     Active Substance: CLONAZEPAM
     Indication: DRUG USE DISORDER
     Dosage: 1 DF, PRN
     Route: 065
     Dates: start: 20191027
  2. PREGABALINE [Suspect]
     Active Substance: PREGABALIN
     Indication: DRUG USE DISORDER
     Dosage: 1 DF, PRN
     Route: 065
     Dates: start: 20191027

REACTIONS (2)
  - Aggression [Not Recovered/Not Resolved]
  - Drug use disorder [Not Recovered/Not Resolved]

NARRATIVE: CASE EVENT DATE: 20191027
